FAERS Safety Report 8353331 (Version 2)
Quarter: 2020Q1

REPORT INFORMATION
  Report Type: Spontaneous
  Country: US (occurrence: US)
  Receive Date: 20120125
  Receipt Date: 20200306
  Transmission Date: 20200409
  Serious: Yes (Other)
  Sender: FDA-Public Use
  Company Number: US-JNJFOC-20120107863

PATIENT
  Sex: Male
  Weight: 90.8 kg

DRUGS (3)
  1. RISPERDAL CONSTA [Suspect]
     Active Substance: RISPERIDONE
     Indication: SCHIZOAFFECTIVE DISORDER
     Route: 030
     Dates: start: 2004, end: 20111225
  2. RISPERDAL [Suspect]
     Active Substance: RISPERIDONE
     Indication: PRODUCT USED FOR UNKNOWN INDICATION
     Route: 065
     Dates: start: 200402
  3. AMITIZA [Concomitant]
     Active Substance: LUBIPROSTONE
     Indication: RENAL DISORDER PROPHYLAXIS

REACTIONS (10)
  - Off label use [Unknown]
  - Tardive dyskinesia [Not Recovered/Not Resolved]
  - Constipation [Unknown]
  - Aphasia [Not Recovered/Not Resolved]
  - Attention deficit/hyperactivity disorder [Not Recovered/Not Resolved]
  - Inappropriate schedule of product administration [Unknown]
  - Irregular sleep phase [Not Recovered/Not Resolved]
  - Pain [Not Recovered/Not Resolved]
  - Feeling abnormal [Not Recovered/Not Resolved]
  - Emotional distress [Unknown]

NARRATIVE: CASE EVENT DATE: 2004
